FAERS Safety Report 19844481 (Version 1)
Quarter: 2021Q3

REPORT INFORMATION
  Report Type: Report from Study
  Country: ES (occurrence: ES)
  Receive Date: 20210916
  Receipt Date: 20210916
  Transmission Date: 20211014
  Serious: Yes (Hospitalization)
  Sender: FDA-Public Use
  Company Number: ES-ASTRAZENECA-2021A718611

PATIENT
  Age: 80 Year
  Sex: Male

DRUGS (4)
  1. CLOPIDOGREL [Suspect]
     Active Substance: CLOPIDOGREL BISULFATE
     Dosage: 1 TABLET EVERY 24 HOURS ? ORAL ROUTE
     Route: 048
     Dates: start: 20201210
  2. PITAVASTATIN CINFA [Suspect]
     Active Substance: PITAVASTATIN
     Dosage: 1 TABLET EVERY 24 HOURS ? ORAL ROUTE
     Route: 048
     Dates: start: 20201218
  3. QUETIAPINE. [Suspect]
     Active Substance: QUETIAPINE
     Dosage: QUETIAPINE 25MG, 60 TABLETS (561650) 1 TABLET EVERY 24 HOURS
     Route: 048
     Dates: start: 20201218
  4. CLOMETIAZOLE [Suspect]
     Active Substance: CLOMETHIAZOLE
     Dosage: DISTRANEURINE 30 CAPSULES (654161) 1 EVERY 8 HOURS
     Route: 048
     Dates: start: 20201210, end: 20210107

REACTIONS (2)
  - Jaundice [Recovered/Resolved]
  - Drug-induced liver injury [Recovered/Resolved]

NARRATIVE: CASE EVENT DATE: 20210116
